FAERS Safety Report 17210440 (Version 1)
Quarter: 2019Q4

REPORT INFORMATION
  Report Type: Report from Study
  Country: AU (occurrence: AU)
  Receive Date: 20191227
  Receipt Date: 20191227
  Transmission Date: 20200122
  Serious: Yes (Other)
  Sender: FDA-Public Use
  Company Number: AU-JNJFOC-20191240174

PATIENT
  Sex: Female

DRUGS (1)
  1. REMICADE [Suspect]
     Active Substance: INFLIXIMAB
     Indication: CROHN^S DISEASE
     Dosage: DOSE REPORTED AS 90 MG
     Route: 042

REACTIONS (2)
  - Systemic lupus erythematosus [Unknown]
  - Alopecia [Unknown]
